FAERS Safety Report 10208082 (Version 1)
Quarter: 2014Q2

REPORT INFORMATION
  Report Type: Spontaneous
  Country: US (occurrence: US)
  Receive Date: 20140530
  Receipt Date: 20140530
  Transmission Date: 20141212
  Serious: No
  Sender: FDA-Public Use
  Company Number: US-BRISTOL-MYERS SQUIBB COMPANY-19425446

PATIENT
  Age: 60 Year
  Sex: Female

DRUGS (2)
  1. EFAVIRENZ TABS [Suspect]
     Dosage: FILM-COATED TABLET
     Route: 048
  2. ISENTRESS [Interacting]
     Indication: HIV INFECTION
     Dosage: TABS
     Route: 048

REACTIONS (1)
  - Drug interaction [Not Recovered/Not Resolved]
